FAERS Safety Report 9159883 (Version 1)
Quarter: 2013Q1

REPORT INFORMATION
  Report Type: Spontaneous
  Country: IN (occurrence: IN)
  Receive Date: 20130313
  Receipt Date: 20130313
  Transmission Date: 20140127
  Serious: Yes (Death)
  Sender: FDA-Public Use
  Company Number: IN-PFIZER INC-2013081313

PATIENT
  Sex: Male

DRUGS (10)
  1. SUTENT [Suspect]
     Indication: GASTROINTESTINAL STROMAL TUMOUR
     Dosage: 37.5 MG, 1X/DAY
     Route: 048
  2. SUTENT [Suspect]
     Dosage: 37.5 MG, CYCLIC, 4 WEEKS ON AND THEN 2 WEEKS OFF
     Dates: start: 20130125
  3. ZYLORIC [Concomitant]
     Dosage: 1 DF, 2X/DAY
  4. ZYLORIC [Concomitant]
     Dosage: 1 DF, 1X/DAY
  5. CAP A TO Z [Concomitant]
     Dosage: 1 DF, 1X/DAY
  6. RANTAC [Concomitant]
     Dosage: 150 MG, 2X/DAY
  7. COMBIFLAM [Concomitant]
  8. LASILACTONE [Concomitant]
     Dosage: 1 DF, 1X/DAY
  9. TRAMAZAC [Concomitant]
  10. GEMCOL [Concomitant]
     Dosage: 1 DF, 1X/DAY

REACTIONS (1)
  - Death [Fatal]
